FAERS Safety Report 7524411-0 (Version None)
Quarter: 2011Q2

REPORT INFORMATION
  Report Type: 
  Country: None (occurrence: None)
  Receive Date: 20110606
  Receipt Date: 20110531
  Transmission Date: 20111010
  Serious: Yes (Death, Hospitalization)
  Sender: FDA-Public Use
  Company Number: PHHY2010MX73067

PATIENT
  Sex: Female

DRUGS (1)
  1. DIOVAN HCT [Suspect]
     Indication: HYPERTENSION
     Dosage: 1 DF (160 MG VALSARTAN + 25 MG HYDROCHLOROTHIAZIDE) PER DAY
     Route: 048
     Dates: start: 20060101

REACTIONS (4)
  - MYOCARDIAL ISCHAEMIA [None]
  - PANCREATIC CARCINOMA [None]
  - RESPIRATORY ARREST [None]
  - NEOPLASM MALIGNANT [None]
